FAERS Safety Report 25606263 (Version 1)
Quarter: 2025Q3

REPORT INFORMATION
  Report Type: Other
  Country: CN (occurrence: CN)
  Receive Date: 20250725
  Receipt Date: 20250725
  Transmission Date: 20251021
  Serious: Yes (Hospitalization)
  Sender: ANI
  Company Number: CN-ANIPHARMA-023726

PATIENT
  Sex: Male

DRUGS (10)
  1. VALPROIC ACID [Suspect]
     Active Substance: VALPROIC ACID
     Indication: Seizure
     Dates: start: 20191119
  2. SULFAMETHOXAZOLE\TRIMETHOPRIM [Suspect]
     Active Substance: SULFAMETHOXAZOLE\TRIMETHOPRIM
     Indication: Brain abscess
     Route: 048
  3. LEVETIRACETAM [Concomitant]
     Active Substance: LEVETIRACETAM
     Indication: Seizure
  4. MANNITOL [Concomitant]
     Active Substance: MANNITOL
     Indication: Oedema
  5. FRUCTOSE\GLYCERIN [Concomitant]
     Active Substance: FRUCTOSE\GLYCERIN
     Indication: Oedema
  6. IMIPENEM AND CILASTATIN [Concomitant]
     Active Substance: CILASTATIN SODIUM\IMIPENEM
     Indication: Brain abscess
     Dates: start: 20220609
  7. AMIKACIN [Concomitant]
     Active Substance: AMIKACIN
     Indication: Brain abscess
     Dates: start: 20220609
  8. MINOCYCLINE [Concomitant]
     Active Substance: MINOCYCLINE HYDROCHLORIDE
     Indication: Brain abscess
     Route: 048
     Dates: start: 20220701, end: 20230310
  9. AMOXICILLIN [Concomitant]
     Active Substance: AMOXICILLIN
     Indication: Brain abscess
  10. VALPROIC ACID [Suspect]
     Active Substance: VALPROIC ACID
     Indication: Seizure
     Dates: start: 20220306

REACTIONS (3)
  - Treatment noncompliance [Unknown]
  - Hypersensitivity [Unknown]
  - Rash [Unknown]
